FAERS Safety Report 10363003 (Version 1)
Quarter: 2014Q1

REPORT INFORMATION
  Report Type: Spontaneous
  Country: US (occurrence: None)
  Receive Date: 20140306
  Receipt Date: 20140306
  Transmission Date: 20141002
  Serious: Yes (Hospitalization, Other)
  Sender: FDA-Public Use
  Company Number: 163-21880-13110050

PATIENT
  Age: 76 Year
  Sex: Male
  Weight: 96.16 kg

DRUGS (1)
  1. REVLIMID [Suspect]
     Indication: MANTLE CELL LYMPHOMA
     Dosage: 25 MG, 21 IN 28 D, PO
     Route: 048
     Dates: start: 20131020, end: 20131030

REACTIONS (3)
  - Pulmonary embolism [None]
  - Dizziness [None]
  - Chest discomfort [None]
